FAERS Safety Report 17109837 (Version 1)
Quarter: 2019Q4

REPORT INFORMATION
  Report Type: Spontaneous
  Country: US (occurrence: US)
  Receive Date: 20191108
  Receipt Date: 20191108
  Transmission Date: 20200122
  Serious: No
  Sender: FDA-Public Use
  Company Number: None

PATIENT

DRUGS (4)
  1. RISPERIDONE RISPERIDONE [Suspect]
     Active Substance: RISPERIDONE
     Route: 048
  2. LEVETIRACETAM LEVETIRACETAM [Suspect]
     Active Substance: LEVETIRACETAM
     Route: 048
  3. LITHIUM CARBONATE LITHIUM CARBONATE [Suspect]
     Active Substance: LITHIUM CARBONATE
     Route: 048
  4. HALOPERIDOL HALOPERIDOL [Suspect]
     Active Substance: HALOPERIDOL
     Route: 048

REACTIONS (4)
  - Circumstance or information capable of leading to device use error [None]
  - Product appearance confusion [None]
  - Wrong product stored [None]
  - Product packaging confusion [None]
